FAERS Safety Report 7450264-5 (Version None)
Quarter: 2011Q1

REPORT INFORMATION
  Report Type: 
  Country: None (occurrence: None)
  Receive Date: 20110302
  Receipt Date: 20101207
  Transmission Date: 20110831
  Serious: No
  Sender: FDA-Public Use
  Company Number: 023395

PATIENT
  Sex: Female
  Weight: 48.1 kg

DRUGS (4)
  1. MELPHALAN HYDROCHLORIDE [Concomitant]
  2. ATIVAN [Concomitant]
  3. CIMZIA [Suspect]
     Indication: CROHN'S DISEASE
     Dosage: 2 SHOTS SUBCUTANEOUS
     Route: 058
     Dates: start: 20091210
  4. PAXIL [Concomitant]

REACTIONS (6)
  - FREQUENT BOWEL MOVEMENTS [None]
  - PRODUCTIVE COUGH [None]
  - BACK PAIN [None]
  - GASTROENTERITIS VIRAL [None]
  - UPPER-AIRWAY COUGH SYNDROME [None]
  - FATIGUE [None]
